FAERS Safety Report 6840180-1 (Version None)
Quarter: 2010Q3

REPORT INFORMATION
  Report Type: 
  Country: None (occurrence: None)
  Receive Date: 20100713
  Receipt Date: 20100713
  Transmission Date: 20110219
  Serious: Yes (Other)
  Sender: FDA-Public Use
  Company Number: None

PATIENT
  Age: 46 Year
  Sex: Female
  Weight: 72.5755 kg

DRUGS (1)
  1. OCELLA DRSP 3MG EE.03MG BAYER HEALTHCARE PHARMACEUTICALS [Suspect]
     Indication: MENORRHAGIA
     Dosage: ONE TABLET DAILY PO
     Route: 048
     Dates: start: 20090518, end: 20090909

REACTIONS (2)
  - DEEP VEIN THROMBOSIS [None]
  - THROMBOPHLEBITIS [None]
